FAERS Safety Report 21800308 (Version 4)
Quarter: 2023Q2

REPORT INFORMATION
  Report Type: Spontaneous
  Country: US (occurrence: US)
  Receive Date: 20221230
  Receipt Date: 20230414
  Transmission Date: 20230722
  Serious: No
  Sender: FDA-Public Use
  Company Number: US-PFIZER INC-PV202200133185

PATIENT
  Age: 62 Year
  Sex: Female
  Weight: 53.968 kg

DRUGS (1)
  1. PREMPRO [Suspect]
     Active Substance: ESTROGENS, CONJUGATED\MEDROXYPROGESTERONE ACETATE
     Indication: Hot flush
     Dosage: 0.3/1.5 MG, DAILY
     Route: 048

REACTIONS (2)
  - Dysphonia [Unknown]
  - Nasopharyngitis [Unknown]
